FAERS Safety Report 8866413 (Version 2)
Quarter: 2012Q4

REPORT INFORMATION
  Report Type: 
  Country: US (occurrence: US)
  Receive Date: 20121025
  Receipt Date: 20121112
  Transmission Date: 20130627
  Serious: Yes (Hospitalization, Other)
  Sender: FDA-Public Use
  Company Number: US-ASTRAZENECA-2012SE79144

PATIENT
  Age: 52 Year
  Sex: Male
  Weight: 74.8 kg

DRUGS (9)
  1. ATENOLOL [Suspect]
     Indication: HYPERTENSION
     Route: 048
  2. NEXIUM [Suspect]
     Indication: GASTROOESOPHAGEAL REFLUX DISEASE
     Route: 048
     Dates: start: 201205
  3. OMEPRAZOLE [Suspect]
     Indication: GASTROOESOPHAGEAL REFLUX DISEASE
     Route: 048
     Dates: start: 201004, end: 2012
  4. VICODIN [Concomitant]
     Indication: PAIN
     Route: 048
     Dates: start: 2006
  5. FINASTERIDE [Concomitant]
     Indication: PROSTATIC DISORDER
     Route: 048
     Dates: start: 2010
  6. FLOMAX [Concomitant]
     Indication: PROSTATIC DISORDER
     Dates: start: 201010
  7. CIPRO [Concomitant]
     Indication: INFECTION
     Route: 048
     Dates: start: 201205
  8. METRONIDAZOLE [Concomitant]
     Indication: INFECTION
     Route: 048
     Dates: start: 201205
  9. STEROIDS [Concomitant]
     Dates: start: 1998

REACTIONS (10)
  - Prostate cancer [Unknown]
  - Abdominal pain [Not Recovered/Not Resolved]
  - Infection [Unknown]
  - Large intestine perforation [Unknown]
  - Hepatitis C [Unknown]
  - Dysuria [Unknown]
  - Oesophageal polyp [Unknown]
  - Aphagia [Unknown]
  - Herpes zoster [Unknown]
  - Drug dose omission [Unknown]
